FAERS Safety Report 14858598 (Version 1)
Quarter: 2018Q2

REPORT INFORMATION
  Report Type: Spontaneous
  Country: FR (occurrence: FR)
  Receive Date: 20180508
  Receipt Date: 20180508
  Transmission Date: 20180711
  Serious: Yes (Hospitalization)
  Sender: FDA-Public Use
  Company Number: FR-MERCK KGAA-2047368

PATIENT
  Age: 56 Year
  Sex: Female

DRUGS (1)
  1. NOVOTHYROX [Suspect]
     Active Substance: LEVOTHYROXINE SODIUM
     Indication: HYPOTHYROIDISM

REACTIONS (22)
  - Visual impairment [Recovered/Resolved]
  - Tinnitus [None]
  - Vision blurred [None]
  - Insomnia [Recovered/Resolved]
  - Headache [Recovered/Resolved]
  - Hot flush [Recovered/Resolved]
  - Fatigue [None]
  - Anti-thyroid antibody positive [Recovered/Resolved]
  - Arthralgia [None]
  - Amnesia [Recovered/Resolved]
  - Disturbance in attention [Recovered/Resolved]
  - Speech disorder [Recovered/Resolved]
  - Depression [Recovered/Resolved]
  - Feeling abnormal [None]
  - Impaired driving ability [None]
  - Aggression [Recovered/Resolved]
  - Alopecia [Recovered/Resolved]
  - Stress [Recovered/Resolved]
  - Anxiety [Recovered/Resolved]
  - Laziness [None]
  - Loss of personal independence in daily activities [None]
  - Tremor [Recovered/Resolved]

NARRATIVE: CASE EVENT DATE: 2017
